FAERS Safety Report 13434898 (Version 1)
Quarter: 2017Q2

REPORT INFORMATION
  Report Type: Report from Study
  Country: CN (occurrence: CN)
  Receive Date: 20170412
  Receipt Date: 20170412
  Transmission Date: 20170830
  Serious: Yes (Hospitalization)
  Sender: FDA-Public Use
  Company Number: PHHY2017CN055142

PATIENT
  Age: 66 Year
  Sex: Male

DRUGS (1)
  1. VALSARTAN. [Suspect]
     Active Substance: VALSARTAN
     Indication: HYPERTENSION
     Dosage: 1 DF, QD (ONE CAPSULE)
     Route: 048

REACTIONS (10)
  - Complement factor C4 decreased [Unknown]
  - Type 2 diabetes mellitus [Unknown]
  - Dysarthria [Unknown]
  - Cognitive disorder [Unknown]
  - Speech disorder [Unknown]
  - Hyperlipidaemia [Unknown]
  - Cough [Unknown]
  - Glycosylated haemoglobin increased [Unknown]
  - Encephalopathy [Unknown]
  - Frontotemporal dementia [Unknown]

NARRATIVE: CASE EVENT DATE: 201605
